FAERS Safety Report 7212766-6 (Version None)
Quarter: 2010Q4

REPORT INFORMATION
  Report Type: 
  Country: None (occurrence: None)
  Receive Date: 20101126
  Receipt Date: 20101019
  Transmission Date: 20110411
  Serious: No
  Sender: FDA-Public Use
  Company Number: 316763

PATIENT
  Age: 62 Year
  Sex: Female

DRUGS (10)
  1. VICTOZA [Suspect]
     Indication: PRODUCT USED FOR UNKNOWN INDICATION
     Dosage: 1.2 U, QD, SUBCUTANEOUS ; 0.6 QD, SUBCUTANEOUS
     Route: 058
  2. LEXAPRO [Concomitant]
  3. GLIPIZIDE [Concomitant]
  4. CENTRUM SILVER /01292501/ (ASCORBIC ACID, CALCIUM, MINERALS NOS, RETIN [Concomitant]
  5. PRILOSEC [Concomitant]
  6. CALCIUM + VITAMIN D (CALCIUM, COLECALCIFEROL) [Concomitant]
  7. LIPITOR [Concomitant]
  8. METFORMIN (METFORMIN) [Concomitant]
  9. BENAZEPRIL HYDROCHLORIDE [Concomitant]
  10. ASPIRIN [Concomitant]

REACTIONS (4)
  - DECREASED APPETITE [None]
  - INJECTION SITE ERYTHEMA [None]
  - INJECTION SITE PRURITUS [None]
  - INJECTION SITE SWELLING [None]
